FAERS Safety Report 6262371-3 (Version None)
Quarter: 2009Q3

REPORT INFORMATION
  Report Type: 
  Country: None (occurrence: None)
  Receive Date: 20090709
  Receipt Date: 20090706
  Transmission Date: 20100115
  Serious: Yes (Death, Other)
  Sender: FDA-Public Use
  Company Number: PHHY2008JP22570

PATIENT
  Sex: Male

DRUGS (2)
  1. GLEEVEC [Suspect]
     Indication: ACUTE LYMPHOCYTIC LEUKAEMIA RECURRENT
     Dosage: 300 MG/DAY
     Route: 048
     Dates: start: 20000101
  2. LOCAL RADIOTHERAPY [Concomitant]
     Indication: ACUTE LYMPHOCYTIC LEUKAEMIA RECURRENT
     Dosage: 36GY
     Dates: start: 20000101, end: 20000101

REACTIONS (14)
  - BLAST CELL CRISIS [None]
  - BONE LESION [None]
  - BONE MARROW FAILURE [None]
  - COMPRESSION FRACTURE [None]
  - LEUKOPENIA [None]
  - NASAL SINUS CANCER [None]
  - NEOPLASM SKIN [None]
  - PAIN [None]
  - PARALYSIS [None]
  - PLATELET COUNT DECREASED [None]
  - PLEURAL EFFUSION [None]
  - SEPSIS [None]
  - SPINAL CORD NEOPLASM [None]
  - SWELLING [None]
